FAERS Safety Report 16836208 (Version 1)
Quarter: 2019Q3

REPORT INFORMATION
  Report Type: Spontaneous
  Country: US (occurrence: US)
  Receive Date: 20190921
  Receipt Date: 20190921
  Transmission Date: 20191005
  Serious: No
  Sender: FDA-Public Use
  Company Number: US-009507513-1909USA002222

PATIENT
  Sex: Male

DRUGS (1)
  1. PROSCAR [Suspect]
     Active Substance: FINASTERIDE
     Dosage: SPLIT TABLET IN QUARTERS AND TAKE IT
     Route: 048

REACTIONS (2)
  - Fatigue [Unknown]
  - Wrong technique in product usage process [Unknown]
